FAERS Safety Report 4463739-8 (Version None)
Quarter: 2004Q3

REPORT INFORMATION
  Report Type: 
  Country: None (occurrence: None)
  Receive Date: 20040929
  Receipt Date: 20040914
  Transmission Date: 20050211
  Serious: Yes (Hospitalization, Other)
  Sender: FDA-Public Use
  Company Number: 239296

PATIENT
  Sex: Female
  Weight: 3.5 kg

DRUGS (17)
  1. ACTRAPID PENFILL HM (GE) 3 ML (INSULIN HUMAN) SOLUTION FOR INJECTION, [Suspect]
     Indication: DIABETES MELLITUS
     Dosage: SEE IMAGE
     Dates: start: 20040320, end: 20040910
  2. ACTRAPID PENFILL HM (GE) 3 ML (INSULIN HUMAN) SOLUTION FOR INJECTION, [Suspect]
     Indication: DIABETES MELLITUS
     Dosage: SEE IMAGE
     Dates: start: 20040911
  3. PROTAPHANE HM PENFILL (INSULIN HUMAN) SUSPENSION FOR INJECTION [Concomitant]
  4. OXYBATE SODIUM (OXYBATE SODIUM) [Concomitant]
  5. SODIUM CHLORIDE ^LECIVA^ (SODIUM CHLORIDE) [Concomitant]
  6. AJMALINE PHENOBARBITAL (AJMALINE PHENOBARBITAL) [Concomitant]
  7. DEXAMETHASONE [Concomitant]
  8. CLAFORAN [Concomitant]
  9. ETHAMSYLATE (ETAMSILATE) [Concomitant]
  10. GAMMA-AMINOBUTYRIC ACID (GAMMA-AMINOBUTYRIC ACID) [Concomitant]
  11. SODIUM CHLORIDE 0.9% [Concomitant]
  12. NYSTATIN [Concomitant]
  13. BIFI-FORM (BIFIDOBACTERIUM BIFIDIUM, ENTEROCOCCUS FAECIUM) [Concomitant]
  14. FUROSEMIDE [Concomitant]
  15. PANANGIN (MAGNESIUM ASPARTATE, ASPARTATE POTASSIUM) [Concomitant]
  16. ASCORBIC ACID [Concomitant]
  17. CEFOTAXIME SODIUM [Concomitant]

REACTIONS (6)
  - CENTRAL NERVOUS SYSTEM LESION [None]
  - DIABETIC FOETOPATHY [None]
  - DRUG EXPOSURE DURING PREGNANCY [None]
  - GENERALISED OEDEMA [None]
  - HYPOGLYCAEMIA NEONATAL [None]
  - PREMATURE BABY [None]
